FAERS Safety Report 9217104 (Version 2)
Quarter: 2013Q2

REPORT INFORMATION
  Report Type: Spontaneous
  Country: US (occurrence: None)
  Receive Date: 20130404
  Receipt Date: 20130513
  Transmission Date: 20140414
  Serious: Yes (Other)
  Sender: FDA-Public Use
  Company Number: US-JNJFOC-20130316510

PATIENT
  Age: 61 Year
  Sex: Female
  Weight: 115.7 kg

DRUGS (1)
  1. DACOGEN [Suspect]
     Indication: ACUTE MYELOID LEUKAEMIA
     Dosage: 20 MG/M2, IN 1 CYCLICAL, IV
     Route: 042
     Dates: start: 20130228

REACTIONS (2)
  - Lymphocyte count decreased [None]
  - Febrile neutropenia [None]
